FAERS Safety Report 23280450 (Version 4)
Quarter: 2024Q1

REPORT INFORMATION
  Report Type: Spontaneous
  Country: TR (occurrence: TR)
  Receive Date: 20231211
  Receipt Date: 20240318
  Transmission Date: 20240410
  Serious: No
  Sender: FDA-Public Use
  Company Number: TR-JNJFOC-20231158271

PATIENT
  Age: 39 Year
  Sex: Male
  Weight: 105 kg

DRUGS (6)
  1. SIMPONI [Suspect]
     Active Substance: GOLIMUMAB
     Indication: Uveitis
     Dosage: STRENGTH: 50.00 MG / 0.50 ML
     Route: 058
  2. SIMPONI [Suspect]
     Active Substance: GOLIMUMAB
     Indication: Ankylosing spondylitis
  3. SIMPONI [Suspect]
     Active Substance: GOLIMUMAB
     Indication: Colitis ulcerative
  4. SIMPONI [Suspect]
     Active Substance: GOLIMUMAB
     Indication: Uveitis
     Dosage: STRENGTH: 50.00 MG / 0.50 ML
     Route: 058
  5. SIMPONI [Suspect]
     Active Substance: GOLIMUMAB
     Indication: Ankylosing spondylitis
  6. SIMPONI [Suspect]
     Active Substance: GOLIMUMAB
     Indication: Colitis ulcerative

REACTIONS (6)
  - Emotional distress [Unknown]
  - Device leakage [Unknown]
  - Incorrect dose administered by device [Unknown]
  - Device defective [Unknown]
  - Diarrhoea [Recovering/Resolving]
  - Therapy non-responder [Unknown]
